FAERS Safety Report 7541616-3 (Version None)
Quarter: 2011Q2

REPORT INFORMATION
  Report Type: 
  Country: None (occurrence: None)
  Receive Date: 20110613
  Receipt Date: 20110531
  Transmission Date: 20111010
  Serious: Yes (Hospitalization)
  Sender: FDA-Public Use
  Company Number: US-ELI_LILLY_AND_COMPANY-US201008002863

PATIENT
  Sex: Female

DRUGS (11)
  1. LEVOTHYROXINE SODIUM [Concomitant]
  2. HYDROCODONE BITARTRATE [Concomitant]
  3. INSULIN [Concomitant]
  4. VITAMIN TAB [Concomitant]
  5. THYROID TAB [Concomitant]
  6. FORTEO [Suspect]
     Indication: OSTEOPOROSIS
     Dosage: 20 UG, DAILY (1/D)
     Route: 065
     Dates: start: 20100701
  7. FORTEO [Suspect]
     Dosage: 20 UG, DAILY (1/D)
     Route: 065
  8. FORTEO [Suspect]
     Dosage: 20 UG, DAILY (1/D)
     Route: 065
  9. PREDNISONE [Concomitant]
  10. FORTEO [Suspect]
     Dosage: 20 UG, QD
  11. ADVAIR DISKUS 100/50 [Concomitant]

REACTIONS (18)
  - FATIGUE [None]
  - WEIGHT DECREASED [None]
  - WOUND [None]
  - COUGH [None]
  - EXOSTOSIS [None]
  - GAIT DISTURBANCE [None]
  - IMPAIRED HEALING [None]
  - ARTHRALGIA [None]
  - VERTIGO [None]
  - HYPOAESTHESIA [None]
  - FEAR OF FALLING [None]
  - OSTEOARTHRITIS [None]
  - SPONDYLITIS [None]
  - PRURITUS [None]
  - SINUSITIS [None]
  - ASTHENIA [None]
  - VOMITING [None]
  - DRUG DOSE OMISSION [None]
